FAERS Safety Report 9927035 (Version 1)
Quarter: 2014Q1

REPORT INFORMATION
  Report Type: Spontaneous
  Country: MX (occurrence: MX)
  Receive Date: 20140226
  Receipt Date: 20140226
  Transmission Date: 20141002
  Serious: Yes (Other)
  Sender: FDA-Public Use
  Company Number: PHHY2014MX023359

PATIENT
  Age: 56 Year
  Sex: Female

DRUGS (2)
  1. EXFORGE [Suspect]
     Indication: HYPERTENSION
     Dosage: 1 DF (160/10 MG), DAILY
     Route: 048
     Dates: start: 201301, end: 201302
  2. EXFORGE [Suspect]
     Dosage: 0.5 DF (160/10 MG), DAILY
     Route: 048
     Dates: start: 201302

REACTIONS (6)
  - Diabetes mellitus [Unknown]
  - Cardiomegaly [Unknown]
  - Blood triglycerides increased [Not Recovered/Not Resolved]
  - Nervousness [Unknown]
  - Hypotension [Not Recovered/Not Resolved]
  - Wrong technique in drug usage process [Not Recovered/Not Resolved]
